FAERS Safety Report 24958700 (Version 1)
Quarter: 2025Q1

REPORT INFORMATION
  Report Type: Spontaneous
  Country: GB (occurrence: GB)
  Receive Date: 20250212
  Receipt Date: 20250212
  Transmission Date: 20250409
  Serious: Yes (Other)
  Sender: BECTON DICKINSON
  Company Number: None

PATIENT
  Age: 3 Day
  Sex: Male

DRUGS (2)
  1. CHLORAPREP [Suspect]
     Active Substance: CHLORHEXIDINE GLUCONATE\ISOPROPYL ALCOHOL
     Indication: Infection prophylaxis
     Route: 065
  2. OCTENISAN CLEANING [Concomitant]
     Indication: Product used for unknown indication
     Route: 065

REACTIONS (1)
  - Skin injury [Recovered/Resolved with Sequelae]

NARRATIVE: CASE EVENT DATE: 20240303
